FAERS Safety Report 11625237 (Version 1)
Quarter: 2015Q4

REPORT INFORMATION
  Report Type: Spontaneous
  Country: US (occurrence: US)
  Receive Date: 20151013
  Receipt Date: 20151013
  Transmission Date: 20160304
  Serious: No
  Sender: FDA-Public Use
  Company Number: US-ENDO PHARMACEUTICALS INC.-2015-001893

PATIENT
  Age: 73 Year
  Sex: Male
  Weight: 72.64 kg

DRUGS (1)
  1. VALSTAR [Suspect]
     Active Substance: VALRUBICIN
     Indication: BLADDER CANCER
     Route: 043
     Dates: start: 201411, end: 201411

REACTIONS (2)
  - Weight decreased [Not Recovered/Not Resolved]
  - Pneumonia [Unknown]

NARRATIVE: CASE EVENT DATE: 2014
